FAERS Safety Report 9927371 (Version 3)
Quarter: 2014Q2

REPORT INFORMATION
  Report Type: Spontaneous
  Country: US (occurrence: US)
  Receive Date: 20140226
  Receipt Date: 20140429
  Transmission Date: 20141212
  Serious: Yes (Hospitalization, Other)
  Sender: FDA-Public Use
  Company Number: US-GILEAD-2014-0095487

PATIENT
  Sex: Male

DRUGS (1)
  1. LETAIRIS [Suspect]
     Indication: PULMONARY ARTERIAL HYPERTENSION
     Dosage: 10 MG, QD
     Route: 065
     Dates: start: 20130529

REACTIONS (6)
  - Chronic obstructive pulmonary disease [Unknown]
  - Lower respiratory tract infection bacterial [Unknown]
  - Dyspnoea [Unknown]
  - Middle insomnia [Unknown]
  - Unevaluable event [Unknown]
  - Oxygen saturation decreased [Unknown]
